FAERS Safety Report 9859594 (Version 1)
Quarter: 2014Q1

REPORT INFORMATION
  Report Type: Spontaneous
  Country: GB (occurrence: GB)
  Receive Date: 20140131
  Receipt Date: 20140131
  Transmission Date: 20141002
  Serious: Yes (Life-Threatening, Other)
  Sender: FDA-Public Use
  Company Number: PHHY2014GB008259

PATIENT
  Age: 22 Year
  Sex: Male
  Weight: 136 kg

DRUGS (3)
  1. OLANZAPINE [Suspect]
     Indication: SCHIZOPHRENIA
     Dosage: 10 MG, UNK
     Route: 048
     Dates: start: 201310, end: 20131025
  2. ARIPIPRAZOLE [Suspect]
     Indication: SCHIZOPHRENIA
     Dosage: 20 MG, UNK
     Route: 048
     Dates: start: 20130621, end: 20131025
  3. DIAZEPAM [Concomitant]
     Indication: ANXIETY
     Dosage: 30 MG, UNK
     Route: 048
     Dates: start: 20131017, end: 20131224

REACTIONS (5)
  - Chest pain [Recovered/Resolved]
  - Myocarditis [Recovered/Resolved]
  - Troponin T increased [Recovered/Resolved]
  - C-reactive protein increased [Recovered/Resolved]
  - Tachycardia [Recovered/Resolved]
